FAERS Safety Report 7078564 (Version 21)
Quarter: 2013Q3

REPORT INFORMATION
  Report Type: Spontaneous
  Country: US (occurrence: US)
  Receive Date: 20090811
  Receipt Date: 20130726
  Transmission Date: 20140515
  Serious: Yes (Death, Hospitalization, Other)
  Sender: FDA-Public Use
  Company Number: PHEH2009US08940

PATIENT
  Sex: Female

DRUGS (35)
  1. ZOMETA [Suspect]
     Indication: BREAST CANCER METASTATIC
     Dosage: 4 MG, MONTHLY
     Dates: start: 2003, end: 200708
  2. LORAZEPAM [Concomitant]
  3. ARIMIDEX [Concomitant]
  4. MEGACE [Concomitant]
  5. AVASTIN [Concomitant]
  6. CEPHALEXIN [Concomitant]
  7. LOPRESSOR [Concomitant]
  8. TYLENOL [Concomitant]
  9. PERIDEX [Concomitant]
  10. WARFARIN [Concomitant]
  11. METRONIDAZOLE [Concomitant]
  12. CIPROFLOXACIN [Concomitant]
  13. XELODA [Concomitant]
  14. ALPHAGAN [Concomitant]
  15. COSOPT [Concomitant]
  16. NEXIUM [Concomitant]
  17. LIPITOR [Concomitant]
  18. FEMARA [Concomitant]
  19. PERIOSTAT [Concomitant]
  20. COUMADIN [Concomitant]
  21. PREDNISONE [Concomitant]
  22. LUNESTA [Concomitant]
  23. TAXOTERE [Concomitant]
     Dosage: 48 MG, UNK
     Route: 042
  24. ZOFRAN [Concomitant]
     Dosage: 32 MG, UNK
     Route: 042
  25. DECADRON [Concomitant]
     Dosage: 10 MG, UNK
     Route: 042
  26. BENADRYL [Concomitant]
     Dosage: 25 MG, UNK
  27. FASLODEX [Concomitant]
     Dosage: 250 MG, QMO
     Route: 030
  28. VYTORIN [Concomitant]
  29. XALATAN [Concomitant]
  30. ALBUTEROL [Concomitant]
  31. AMIODARONE [Concomitant]
  32. DIGOXIN [Concomitant]
  33. ENALAPRIL [Concomitant]
  34. FAMOTIDINE [Concomitant]
  35. IPRATROPIUM [Concomitant]

REACTIONS (105)
  - Osteonecrosis of jaw [Fatal]
  - Oral pain [Fatal]
  - Osteitis [Fatal]
  - Pain [Fatal]
  - Infection [Fatal]
  - Deformity [Fatal]
  - Jaw disorder [Fatal]
  - Exposed bone in jaw [Fatal]
  - Hypophagia [Fatal]
  - Weight decreased [Fatal]
  - Gingival pain [Fatal]
  - Gingival swelling [Fatal]
  - Osteoradionecrosis [Fatal]
  - Gingivitis [Fatal]
  - Loose tooth [Fatal]
  - General physical health deterioration [Fatal]
  - Osteolysis [Fatal]
  - Oesophageal obstruction [Unknown]
  - Oesophageal food impaction [Unknown]
  - Glaucoma [Unknown]
  - Visual impairment [Unknown]
  - Macular degeneration [Unknown]
  - Skin cancer [Unknown]
  - Second primary malignancy [Unknown]
  - Mediastinal mass [Unknown]
  - Lymphadenopathy [Unknown]
  - Pulmonary mass [Unknown]
  - Hepatic lesion [Unknown]
  - Pleural effusion [Unknown]
  - Rotator cuff syndrome [Unknown]
  - Musculoskeletal pain [Unknown]
  - Bursitis [Unknown]
  - Lymphoma [Unknown]
  - Thrombocytopenia [Unknown]
  - Superior vena cava syndrome [Unknown]
  - Hepatic cyst [Unknown]
  - Lung infiltration [Unknown]
  - Pulmonary oedema [Unknown]
  - Aortic arteriosclerosis [Unknown]
  - Mitral valve calcification [Unknown]
  - Deep vein thrombosis [Unknown]
  - Osteopenia [Unknown]
  - Metastases to bone [Unknown]
  - Metastases to liver [Unknown]
  - Hiatus hernia [Unknown]
  - Renal cyst [Unknown]
  - Hepatic steatosis [Unknown]
  - Abdominal hernia [Unknown]
  - Ascites [Unknown]
  - Cardiomyopathy [Unknown]
  - Tachycardia [Unknown]
  - Pneumothorax [Unknown]
  - Hypothyroidism [Unknown]
  - Hyperlipidaemia [Unknown]
  - Iron deficiency anaemia [Unknown]
  - Retinal scar [Unknown]
  - Vocal cord paralysis [Unknown]
  - Splenomegaly [Unknown]
  - Bacteraemia [Unknown]
  - Urinary tract infection [Unknown]
  - Oesophageal stenosis [Unknown]
  - Inappropriate antidiuretic hormone secretion [Unknown]
  - Metastatic lymphoma [Unknown]
  - Phlebitis [Unknown]
  - Paronychia [Unknown]
  - Laryngitis [Unknown]
  - Dysphagia [Unknown]
  - Arthralgia [Unknown]
  - Abdominal distension [Unknown]
  - Gait disturbance [Unknown]
  - Joint swelling [Unknown]
  - Dyspnoea [Unknown]
  - Ear pain [Unknown]
  - Constipation [Unknown]
  - Gastrooesophageal reflux disease [Unknown]
  - Osteoporosis [Unknown]
  - Osteomyelitis [Unknown]
  - Urinary incontinence [Unknown]
  - Fall [Unknown]
  - Decubitus ulcer [Unknown]
  - Swollen tongue [Unknown]
  - Atelectasis [Unknown]
  - Kyphosis [Unknown]
  - Spinal osteoarthritis [Unknown]
  - Radius fracture [Unknown]
  - Head injury [Unknown]
  - Haematoma [Unknown]
  - Malignant pleural effusion [Unknown]
  - Acute respiratory failure [Unknown]
  - Depression [Unknown]
  - Cataract [Unknown]
  - Thrombophlebitis [Unknown]
  - Arthritis [Unknown]
  - Pulmonary hypertension [Unknown]
  - Aortic valve incompetence [Unknown]
  - Mitral valve incompetence [Unknown]
  - Cardiac valve disease [Unknown]
  - Skin lesion [Unknown]
  - Hyponatraemia [Unknown]
  - Arrhythmia [Unknown]
  - Sepsis [Unknown]
  - Oedema peripheral [Unknown]
  - Cardiac murmur [Unknown]
  - Upper respiratory tract infection [Unknown]
  - Menopausal symptoms [Unknown]
